FAERS Safety Report 5695280-9 (Version None)
Quarter: 2008Q2

REPORT INFORMATION
  Report Type: 
  Country: None (occurrence: None)
  Receive Date: 20080404
  Receipt Date: 20080404
  Transmission Date: 20081010
  Serious: Yes (Hospitalization, Other)
  Sender: FDA-Public Use
  Company Number: GB-ABBOTT-04P-167-0282539-00

PATIENT
  Age: 22 Year
  Sex: Female

DRUGS (8)
  1. SEVOFLURANE [Suspect]
     Indication: GENERAL ANAESTHESIA
     Dosage: NOT REPORTED
  2. ONDANSETRON [Suspect]
     Indication: ANAESTHESIA
  3. PROPOFOL [Suspect]
     Indication: GENERAL ANAESTHESIA
  4. DIAMORPHINE [Suspect]
     Indication: ANAESTHESIA
  5. SULFASALAZINE [Concomitant]
     Indication: DRUG USE FOR UNKNOWN INDICATION
     Dosage: NOT REPORTED
  6. DIAMORPHINE [Concomitant]
     Indication: PAIN MANAGEMENT
     Route: 042
  7. KETOROLAC [Concomitant]
     Indication: PAIN MANAGEMENT
     Route: 042
  8. PETHIDINE HYDROCHLORIDE [Concomitant]
     Indication: PAIN MANAGEMENT
     Dosage: NOT REPORTED
     Route: 042

REACTIONS (4)
  - DYSTONIA [None]
  - PRURITUS [None]
  - RASH MACULAR [None]
  - UNEVALUABLE EVENT [None]
